FAERS Safety Report 7588126-5 (Version None)
Quarter: 2011Q2

REPORT INFORMATION
  Report Type: 
  Country: None (occurrence: None)
  Receive Date: 20110627
  Receipt Date: 20110613
  Transmission Date: 20111010
  Serious: Yes (Other)
  Sender: FDA-Public Use
  Company Number: AUR-APL-2011-01137

PATIENT
  Age: 72 Year
  Sex: Female
  Weight: 77.1 kg

DRUGS (8)
  1. LISINOPRIL [Suspect]
     Indication: HYPERTENSION
     Dosage: 10 MG (10 MG, 1 IN 1 D)
  2. CELEBREX [Suspect]
     Indication: ARTHRITIS
     Dosage: 200 MG (200 MG, 1 IN 1 D), ORAL
     Route: 048
  3. PRISTIQ [Suspect]
     Indication: DEPRESSION
     Dosage: 50 MG (50 MG, 1 IN 1 D), ORAL
     Route: 048
     Dates: start: 20110301
  4. LACTULOSE [Suspect]
     Indication: CONSTIPATION
     Dosage: 2 TBSP (1 D)
  5. FENTANYL [Suspect]
     Indication: BACK PAIN
     Dosage: TRANSDERMAL
     Route: 062
  6. NEXIUM [Suspect]
     Indication: GASTRIC DISORDER
     Dosage: 80 MG (40 MG, 2 IN 1 D)
  7. NITROFURANTOIN [Suspect]
     Indication: CYSTITIS
     Dosage: 50 MG (50 MG, 1 IN 1 D)
  8. SPIRIVA [Suspect]
     Indication: CHRONIC OBSTRUCTIVE PULMONARY DISEASE
     Dosage: INHALATION
     Route: 055

REACTIONS (2)
  - RASH [None]
  - DRUG INTERACTION [None]
